FAERS Safety Report 8247302-9 (Version None)
Quarter: 2012Q1

REPORT INFORMATION
  Report Type: 
  Country: None (occurrence: None)
  Receive Date: 20120316
  Receipt Date: 20091230
  Transmission Date: 20120608
  Serious: Yes (Other)
  Sender: FDA-Public Use
  Company Number: PHEH2009US18502

PATIENT
  Sex: Female

DRUGS (1)
  1. TEKTURNA [Suspect]
     Indication: BLOOD PRESSURE
     Dosage: 150 MG
     Dates: start: 20091201

REACTIONS (3)
  - SWELLING FACE [None]
  - MALAISE [None]
  - EYE SWELLING [None]
